FAERS Safety Report 6083561-9 (Version None)
Quarter: 2009Q1

REPORT INFORMATION
  Report Type: 
  Country: None (occurrence: None)
  Receive Date: 20090219
  Receipt Date: 20090206
  Transmission Date: 20090719
  Serious: Yes (Death, Hospitalization, Other)
  Sender: FDA-Public Use
  Company Number: US-BRISTOL-MYERS SQUIBB COMPANY-14449128

PATIENT
  Age: 71 Year
  Sex: Female

DRUGS (45)
  1. BLINDED: IPILIMUMAB [Suspect]
     Indication: LUNG NEOPLASM MALIGNANT
     Dosage: ONLY ONE DOSE ADMINISTERED.  HELD DUE TO GRADE 3 RASH.
     Route: 042
     Dates: start: 20081113, end: 20081113
  2. CARBOPLATIN [Suspect]
     Indication: LUNG NEOPLASM MALIGNANT
     Dosage: INITIATED ON 13NOV08.
     Route: 042
     Dates: start: 20081204, end: 20081204
  3. TAXOL [Suspect]
     Indication: LUNG NEOPLASM MALIGNANT
     Dosage: INITIATED ON 13-NOV-2008. HELD AFTER 04-DEC-2008 DUE TO UNSPECIFIED ADVERSE EVENTS.
     Route: 042
     Dates: start: 20081204, end: 20081204
  4. BLINDED: PLACEBO [Suspect]
     Indication: LUNG NEOPLASM MALIGNANT
     Dosage: INITIATED ON 13-NOV-2008
     Route: 042
     Dates: start: 20081113, end: 20081113
  5. AVELOX [Concomitant]
     Indication: NEUTROPENIA
     Route: 048
     Dates: start: 20081212
  6. AVELOX [Concomitant]
     Indication: PROPHYLAXIS
     Route: 048
     Dates: start: 20081212
  7. TRIAMCINOLONE ACETONIDE [Concomitant]
     Indication: RASH
     Route: 061
     Dates: start: 20081208
  8. TRIAMCINOLONE ACETONIDE [Concomitant]
     Indication: PRURITUS
     Route: 061
     Dates: start: 20081208
  9. NEULASTA [Concomitant]
     Indication: NEUTROPENIA
     Route: 061
     Dates: start: 20081205
  10. NEULASTA [Concomitant]
     Indication: PROPHYLAXIS
     Route: 061
     Dates: start: 20081205
  11. BENADRYL [Concomitant]
     Indication: RASH
     Dosage: (125MG) IV; 03DEC08
     Route: 042
     Dates: start: 20081110, end: 20081208
  12. BENADRYL [Concomitant]
     Indication: PRURITUS
     Dosage: (125MG) IV; 03DEC08
     Route: 042
     Dates: start: 20081110, end: 20081208
  13. BENADRYL [Concomitant]
     Indication: PREMEDICATION
     Dosage: (125MG) IV; 03DEC08
     Route: 042
     Dates: start: 20081110, end: 20081208
  14. TAGAMET [Concomitant]
     Indication: PREMEDICATION
     Route: 042
     Dates: start: 20081115
  15. DEXAMETHASONE TAB [Concomitant]
     Indication: PREMEDICATION
     Route: 042
     Dates: start: 20081113
  16. ALOXI [Concomitant]
     Indication: PREMEDICATION
     Route: 042
     Dates: start: 20081115
  17. LIPITOR [Concomitant]
     Indication: HYPERCHOLESTEROLAEMIA
     Route: 048
     Dates: start: 20060101
  18. BENZONATATE [Concomitant]
     Indication: COUGH
     Route: 048
     Dates: start: 20081001
  19. HYZAAR [Concomitant]
     Indication: HYPERTENSION
     Dosage: 1 DOSAGE FORM = 1 TAB(100/25).
     Route: 048
     Dates: start: 20060101
  20. NEXIUM [Concomitant]
     Indication: GASTROOESOPHAGEAL REFLUX DISEASE
     Route: 048
     Dates: start: 20080101
  21. VERAPAMIL [Concomitant]
     Indication: HYPERTENSION
     Route: 048
     Dates: start: 20060101
  22. ATIVAN [Concomitant]
     Indication: ANXIETY
     Dosage: (0.5MG),PRN ,PO;
     Route: 042
     Dates: start: 20081120
  23. ATIVAN [Concomitant]
     Indication: NAUSEA
     Dosage: (0.5MG),PRN ,PO;
     Route: 042
     Dates: start: 20081120
  24. SODIUM CHLORIDE [Concomitant]
     Indication: ASTHENIA
     Dosage: ALSO GIVEN ON 08DEC08,10DEC08;
     Route: 042
     Dates: start: 20081121
  25. SODIUM CHLORIDE [Concomitant]
     Indication: DEHYDRATION
     Dosage: ALSO GIVEN ON 08DEC08,10DEC08;
     Route: 042
     Dates: start: 20081121
  26. DECADRON [Concomitant]
     Indication: COUGH
     Dosage: (101MG)11NOV08
     Route: 042
     Dates: start: 20081208, end: 20081208
  27. DECADRON [Concomitant]
     Indication: RASH
     Dosage: (101MG)11NOV08
     Route: 042
     Dates: start: 20081208, end: 20081208
  28. DECADRON [Concomitant]
     Indication: PRURITUS
     Dosage: (101MG)11NOV08
     Route: 042
     Dates: start: 20081208, end: 20081208
  29. ULTRAN TAB [Concomitant]
     Indication: PAIN
     Route: 048
     Dates: start: 20081201
  30. HYDROCORTISONE CREAM [Concomitant]
     Indication: PRURITUS
     Route: 061
     Dates: start: 20081201
  31. MEDROL [Concomitant]
     Indication: INFLAMMATION
     Dosage: 20NOV08-27NOV08;01DEC08-07DEC08;
     Route: 048
     Dates: start: 20081120, end: 20081207
  32. MEDROL [Concomitant]
     Indication: RASH
     Dosage: 20NOV08-27NOV08;01DEC08-07DEC08;
     Route: 048
     Dates: start: 20081120, end: 20081207
  33. SOLU-MEDROL [Concomitant]
     Indication: CHEST PAIN
     Route: 042
     Dates: start: 20081113, end: 20081113
  34. PEPCID [Concomitant]
     Indication: RASH
     Dosage: 1 DOSAGE FORM = 1 TAB
     Route: 048
     Dates: start: 20081128
  35. REMERON [Concomitant]
     Indication: WEIGHT DECREASED
     Route: 048
     Dates: start: 20081120
  36. REMERON [Concomitant]
     Indication: DEPRESSION
     Route: 048
     Dates: start: 20081120
  37. AVELOX [Concomitant]
     Route: 048
     Dates: start: 20081120
  38. AVELOX [Concomitant]
     Route: 048
     Dates: start: 20081120
  39. OXYCODONE HCL [Concomitant]
     Indication: PAIN
     Dosage: 1 DOSAGE FORM = 1 TAB(5/325MG)
     Route: 048
     Dates: start: 20081001
  40. ZOMETA [Concomitant]
     Route: 042
  41. LEVAQUIN [Concomitant]
     Indication: PROPHYLAXIS
     Route: 048
     Dates: start: 20081104
  42. SENOKOT [Concomitant]
     Indication: CONSTIPATION
     Dosage: 2 DOSAGE FORM= 2 TABS
     Route: 048
     Dates: start: 20081103
  43. MEGACE ES [Concomitant]
     Indication: ANOREXIA
     Route: 048
     Dates: start: 20081105
  44. MAGNESIUM OXIDE [Concomitant]
     Indication: HYPOMAGNESAEMIA
     Route: 048
     Dates: start: 20081223
  45. CALCIUM + VITAMIN D [Concomitant]
     Indication: HYPOCALCAEMIA
     Route: 048
     Dates: start: 20081223

REACTIONS (4)
  - MALIGNANT NEOPLASM PROGRESSION [None]
  - MALNUTRITION [None]
  - MUSCULAR WEAKNESS [None]
  - SYNCOPE [None]
